FAERS Safety Report 17894757 (Version 7)
Quarter: 2021Q1

REPORT INFORMATION
  Report Type: Spontaneous
  Country: US (occurrence: US)
  Receive Date: 20200615
  Receipt Date: 20210204
  Transmission Date: 20210419
  Serious: No
  Sender: FDA-Public Use
  Company Number: US-SA-2020SA150819

PATIENT
  Age: 32 Year
  Sex: Female

DRUGS (2)
  1. DUPIXENT [Suspect]
     Active Substance: DUPILUMAB
     Indication: DERMATITIS ATOPIC
     Dosage: 600 MG, 1X
     Route: 058
     Dates: start: 202005, end: 202005
  2. DUPIXENT [Suspect]
     Active Substance: DUPILUMAB
     Dosage: 300 MG, QOW
     Route: 058
     Dates: start: 2020

REACTIONS (13)
  - Blepharitis [Unknown]
  - Amnesia [Unknown]
  - Eye inflammation [Unknown]
  - Eye swelling [Unknown]
  - Oral herpes [Unknown]
  - Eye pruritus [Unknown]
  - Erythema of eyelid [Unknown]
  - Eyelids pruritus [Unknown]
  - Headache [Unknown]
  - Ocular hyperaemia [Unknown]
  - Malaise [Unknown]
  - Swelling [Unknown]
  - Periorbital swelling [Unknown]

NARRATIVE: CASE EVENT DATE: 2020
